FAERS Safety Report 4490770-9 (Version None)
Quarter: 2004Q4

REPORT INFORMATION
  Report Type: 
  Country: None (occurrence: None)
  Receive Date: 20041021
  Receipt Date: 20041005
  Transmission Date: 20050328
  Serious: Yes (Other)
  Sender: FDA-Public Use
  Company Number: B0347431A

PATIENT
  Sex: 0

DRUGS (1)
  1. AUGMENTIN '250' [Suspect]
     Indication: PNEUMONIA
     Dosage: THREE TIMES PER DAY, ORAL
     Route: 048

REACTIONS (1)
  - HALLUCINATION [None]
